FAERS Safety Report 6232265-8 (Version None)
Quarter: 2009Q2

REPORT INFORMATION
  Report Type: 
  Country: None (occurrence: None)
  Receive Date: 20090616
  Receipt Date: 20090616
  Transmission Date: 20091009
  Serious: Yes (Other)
  Sender: FDA-Public Use
  Company Number: None

PATIENT
  Age: 44 Year
  Sex: Female
  Weight: 134.7183 kg

DRUGS (22)
  1. LAMOTRIGINE [Suspect]
     Indication: ANXIETY
     Dosage: 25MG QD X 2WKS ORAL;  50MG QD ORAL; 100MG QD ORAL; D/C
     Route: 048
     Dates: start: 20090326, end: 20090424
  2. LAMOTRIGINE [Suspect]
     Indication: MAJOR DEPRESSION
     Dosage: 25MG QD X 2WKS ORAL;  50MG QD ORAL; 100MG QD ORAL; D/C
     Route: 048
     Dates: start: 20090326, end: 20090424
  3. LAMOTRIGINE [Suspect]
     Indication: POST-TRAUMATIC STRESS DISORDER
     Dosage: 25MG QD X 2WKS ORAL;  50MG QD ORAL; 100MG QD ORAL; D/C
     Route: 048
     Dates: start: 20090326, end: 20090424
  4. LAMOTRIGINE [Suspect]
     Indication: ANXIETY
     Dosage: 25MG QD X 2WKS ORAL;  50MG QD ORAL; 100MG QD ORAL; D/C
     Route: 048
     Dates: start: 20090408
  5. LAMOTRIGINE [Suspect]
     Indication: MAJOR DEPRESSION
     Dosage: 25MG QD X 2WKS ORAL;  50MG QD ORAL; 100MG QD ORAL; D/C
     Route: 048
     Dates: start: 20090408
  6. LAMOTRIGINE [Suspect]
     Indication: POST-TRAUMATIC STRESS DISORDER
     Dosage: 25MG QD X 2WKS ORAL;  50MG QD ORAL; 100MG QD ORAL; D/C
     Route: 048
     Dates: start: 20090408
  7. LAMOTRIGINE [Suspect]
     Indication: ANXIETY
     Dosage: 25MG QD X 2WKS ORAL;  50MG QD ORAL; 100MG QD ORAL; D/C
     Route: 048
     Dates: start: 20090423
  8. LAMOTRIGINE [Suspect]
     Indication: MAJOR DEPRESSION
     Dosage: 25MG QD X 2WKS ORAL;  50MG QD ORAL; 100MG QD ORAL; D/C
     Route: 048
     Dates: start: 20090423
  9. LAMOTRIGINE [Suspect]
     Indication: POST-TRAUMATIC STRESS DISORDER
     Dosage: 25MG QD X 2WKS ORAL;  50MG QD ORAL; 100MG QD ORAL; D/C
     Route: 048
     Dates: start: 20090423
  10. LAMOTRIGINE [Suspect]
     Indication: ANXIETY
     Dosage: 25MG QD X 2WKS ORAL;  50MG QD ORAL; 100MG QD ORAL; D/C
     Route: 048
     Dates: start: 20090424
  11. LAMOTRIGINE [Suspect]
     Indication: MAJOR DEPRESSION
     Dosage: 25MG QD X 2WKS ORAL;  50MG QD ORAL; 100MG QD ORAL; D/C
     Route: 048
     Dates: start: 20090424
  12. LAMOTRIGINE [Suspect]
     Indication: POST-TRAUMATIC STRESS DISORDER
     Dosage: 25MG QD X 2WKS ORAL;  50MG QD ORAL; 100MG QD ORAL; D/C
     Route: 048
     Dates: start: 20090424
  13. ACETAMINOPHEN W/ CODEINE [Concomitant]
  14. ADVAIR HFA [Concomitant]
  15. ALBUTEROL [Concomitant]
  16. ALLEGRA [Concomitant]
  17. AMLODIPINE [Concomitant]
  18. FLUOXETINE HCL [Concomitant]
  19. NASONEX [Concomitant]
  20. RELAFEN [Concomitant]
  21. TRAZODONE HCL [Concomitant]
  22. WELLBUTRIN [Concomitant]

REACTIONS (3)
  - RASH ERYTHEMATOUS [None]
  - RASH MACULAR [None]
  - RASH PRURITIC [None]
